FAERS Safety Report 7204509-7 (Version None)
Quarter: 2010Q4

REPORT INFORMATION
  Report Type: 
  Country: None (occurrence: None)
  Receive Date: 20101230
  Receipt Date: 20101227
  Transmission Date: 20110411
  Serious: Yes (Death)
  Sender: FDA-Public Use
  Company Number: AU-GENZYME-FLUD-1000564

PATIENT
  Age: 60 Year
  Sex: Female

DRUGS (8)
  1. FLUDARA [Suspect]
     Indication: WALDENSTROM'S MACROGLOBULINAEMIA
     Dosage: 25 MG/M2, QDX3
     Route: 042
  2. FLUDARA [Suspect]
     Dosage: 25 MG/M2, QDX3
     Route: 042
  3. FLUDARA [Suspect]
     Dosage: 25 MG/M2, QDX3
     Route: 042
  4. FLUDARA [Suspect]
     Dosage: 25 MG/M2, QDX3
     Route: 042
  5. CYCLOPHOSPHAMIDE [Suspect]
     Indication: WALDENSTROM'S MACROGLOBULINAEMIA
     Dosage: 250 MG/M2, QDX3
     Route: 042
  6. CYCLOPHOSPHAMIDE [Suspect]
     Dosage: 250 MG/M2, QDX3
     Route: 042
  7. CYCLOPHOSPHAMIDE [Suspect]
     Dosage: 250 MG/M2, QDX3
     Route: 042
  8. CYCLOPHOSPHAMIDE [Suspect]
     Dosage: 250 MG/M2, QDX3
     Route: 042

REACTIONS (1)
  - ACUTE MYELOID LEUKAEMIA [None]
